FAERS Safety Report 6524241-2 (Version None)
Quarter: 2009Q4

REPORT INFORMATION
  Report Type: 
  Country: None (occurrence: None)
  Receive Date: 20091230
  Receipt Date: 20091230
  Transmission Date: 20100525
  Serious: No
  Sender: FDA-Public Use
  Company Number: None

PATIENT
  Age: 80 Year
  Sex: Male
  Weight: 77.1115 kg

DRUGS (1)
  1. LYRICA [Suspect]
     Indication: SPINAL COLUMN STENOSIS
     Dosage: ONE A DAY 2 TIMES A DAY
     Dates: start: 20090817, end: 20090901

REACTIONS (8)
  - AGITATION [None]
  - DEHYDRATION [None]
  - DEPRESSION [None]
  - GAIT DISTURBANCE [None]
  - NAUSEA [None]
  - NIGHTMARE [None]
  - SOMNOLENCE [None]
  - SPEECH DISORDER [None]
